FAERS Safety Report 9472720 (Version 1)
Quarter: 2013Q3

REPORT INFORMATION
  Report Type: Spontaneous
  Country: CH (occurrence: CH)
  Receive Date: 20130823
  Receipt Date: 20130823
  Transmission Date: 20140515
  Serious: Yes (Hospitalization, Other)
  Sender: FDA-Public Use
  Company Number: CH-009507513-1308CHE008045

PATIENT
  Age: 78 Year
  Sex: Male

DRUGS (2)
  1. REMERON [Suspect]
     Dosage: 1200 MG, ONCE
     Route: 048
     Dates: start: 20130110, end: 20130110
  2. ALCOHOL [Suspect]
     Dosage: WHISKEY
     Route: 048
     Dates: start: 20130110, end: 20130110

REACTIONS (6)
  - Pneumonia aspiration [Recovering/Resolving]
  - Hyperthermia [Recovering/Resolving]
  - Suicide attempt [Recovered/Resolved]
  - Vomiting [Recovering/Resolving]
  - Somnolence [Recovering/Resolving]
  - Overdose [Unknown]
